FAERS Safety Report 18753351 (Version 1)
Quarter: 2021Q1

REPORT INFORMATION
  Report Type: Spontaneous
  Country: US (occurrence: US)
  Receive Date: 20210118
  Receipt Date: 20210118
  Transmission Date: 20210419
  Serious: No
  Sender: FDA-Public Use
  Company Number: US-TEVA-2021-US-1868774

PATIENT
  Age: 77 Year
  Sex: Female

DRUGS (2)
  1. CLONIDINE HYDROCHLORIDE TEVA [Suspect]
     Active Substance: CLONIDINE HYDROCHLORIDE
     Dosage: .3 MILLIGRAM DAILY;
  2. SYNTHROID [Concomitant]
     Active Substance: LEVOTHYROXINE SODIUM

REACTIONS (2)
  - Pruritus [Not Recovered/Not Resolved]
  - Hypersensitivity [Not Recovered/Not Resolved]
